FAERS Safety Report 15027455 (Version 1)
Quarter: 2018Q2

REPORT INFORMATION
  Report Type: Spontaneous
  Country: FR (occurrence: FR)
  Receive Date: 20180619
  Receipt Date: 20180619
  Transmission Date: 20180711
  Serious: Yes (Hospitalization)
  Sender: FDA-Public Use
  Company Number: FR-FLAMINGO-001719

PATIENT
  Age: 70 Year
  Sex: Female
  Weight: 68 kg

DRUGS (13)
  1. AMOXICILLIN. [Suspect]
     Active Substance: AMOXICILLIN
     Indication: OSTEOMYELITIS
     Route: 048
     Dates: start: 20180213, end: 20180228
  2. OROZAMUDOL [Concomitant]
     Active Substance: TRAMADOL
     Indication: PAIN
     Route: 048
  3. DIAMICRON [Concomitant]
     Active Substance: GLICLAZIDE
     Indication: PRODUCT USED FOR UNKNOWN INDICATION
     Route: 048
  4. TRAMADOL. [Concomitant]
     Active Substance: TRAMADOL
     Indication: PAIN
     Route: 048
  5. PRAVASTATINE ACCORD [Concomitant]
     Active Substance: PRAVASTATIN SODIUM
     Indication: PRODUCT USED FOR UNKNOWN INDICATION
  6. LARPXYL ROCHE [Concomitant]
     Indication: PRODUCT USED FOR UNKNOWN INDICATION
     Route: 048
  7. LANSOPRAZOLE MYLAN [Concomitant]
     Active Substance: LANSOPRAZOLE
     Indication: PRODUCT USED FOR UNKNOWN INDICATION
     Route: 048
  8. KARDEGIC [Concomitant]
     Active Substance: ASPIRIN DL-LYSINE
     Indication: PRODUCT USED FOR UNKNOWN INDICATION
     Route: 048
  9. DOLIPRANE [Concomitant]
     Active Substance: ACETAMINOPHEN
     Indication: PRODUCT USED FOR UNKNOWN INDICATION
     Dosage: IF NECESSARY
     Route: 048
  10. METRONIDAZOLE. [Suspect]
     Active Substance: METRONIDAZOLE
     Indication: OSTEOMYELITIS
     Route: 048
     Dates: start: 20180213, end: 20180228
  11. COTAREG [Concomitant]
     Active Substance: HYDROCHLOROTHIAZIDE\VALSARTAN
     Indication: PRODUCT USED FOR UNKNOWN INDICATION
     Dosage: DOSE 1 UNK UNIT
     Route: 048
  12. AMLODIPINE [Concomitant]
     Active Substance: AMLODIPINE BESYLATE
     Indication: PRODUCT USED FOR UNKNOWN INDICATION
     Route: 048
  13. JANUMET [Concomitant]
     Active Substance: METFORMIN HYDROCHLORIDE\SITAGLIPTIN PHOSPHATE
     Indication: PRODUCT USED FOR UNKNOWN INDICATION
     Dosage: DOSE 2 UNIT UNK
     Route: 048

REACTIONS (1)
  - Acute kidney injury [Recovered/Resolved]

NARRATIVE: CASE EVENT DATE: 20180228
